FAERS Safety Report 9315073 (Version 1)
Quarter: 2013Q2

REPORT INFORMATION
  Report Type: Spontaneous
  Country: US (occurrence: US)
  Receive Date: 20130529
  Receipt Date: 20130529
  Transmission Date: 20140414
  Serious: No
  Sender: FDA-Public Use
  Company Number: US-MYLANLABS-2013S1005360

PATIENT
  Age: 61 Year
  Sex: Female
  Weight: 68.04 kg

DRUGS (7)
  1. VALACYCLOVIR [Suspect]
     Indication: ORAL HERPES
     Route: 048
     Dates: start: 201204
  2. MVI [Concomitant]
  3. CALCIUM [Concomitant]
  4. FLAX [Concomitant]
  5. ZINC [Concomitant]
  6. ASA [Concomitant]
  7. MUCINEX [Concomitant]

REACTIONS (3)
  - Drug effect decreased [Not Recovered/Not Resolved]
  - Oral herpes [Not Recovered/Not Resolved]
  - Incorrect dose administered [Not Recovered/Not Resolved]
